FAERS Safety Report 25072565 (Version 2)
Quarter: 2025Q2

REPORT INFORMATION
  Report Type: Spontaneous
  Country: JP (occurrence: JP)
  Receive Date: 20250313
  Receipt Date: 20250530
  Transmission Date: 20250717
  Serious: No
  Sender: NOVO NORDISK
  Company Number: JP-NOVOPROD-1383385

PATIENT
  Sex: Male

DRUGS (2)
  1. RYBELSUS [Suspect]
     Active Substance: SEMAGLUTIDE
     Indication: Type 2 diabetes mellitus
     Route: 048
     Dates: start: 2023
  2. METGLUCO [Concomitant]
     Active Substance: METFORMIN HYDROCHLORIDE
     Indication: Product used for unknown indication

REACTIONS (6)
  - Foreign body in throat [Unknown]
  - Gastrointestinal sounds abnormal [Unknown]
  - Nausea [Recovering/Resolving]
  - Vomiting [Unknown]
  - Oropharyngeal discomfort [Unknown]
  - Hunger [Unknown]
